FAERS Safety Report 7851652-5 (Version None)
Quarter: 2011Q4

REPORT INFORMATION
  Report Type: 
  Country: None (occurrence: None)
  Receive Date: 20111026
  Receipt Date: 20111015
  Transmission Date: 20120403
  Serious: Yes (Other)
  Sender: FDA-Public Use
  Company Number: PHHY2011US91815

PATIENT
  Age: 43 Year
  Sex: Female

DRUGS (1)
  1. VALSARTAN [Suspect]
     Indication: HYPERTENSION

REACTIONS (11)
  - RHINITIS [None]
  - ERYTHEMA [None]
  - FLUSHING [None]
  - NERVOUSNESS [None]
  - PAPULE [None]
  - SKIN FISSURES [None]
  - MELKERSSON-ROSENTHAL SYNDROME [None]
  - GRANULOMA [None]
  - LIP SWELLING [None]
  - CHEILITIS GRANULOMATOSA [None]
  - BURNING SENSATION [None]
